FAERS Safety Report 8302960-5 (Version None)
Quarter: 2012Q2

REPORT INFORMATION
  Report Type: 
  Country: None (occurrence: None)
  Receive Date: 20120420
  Receipt Date: 20120416
  Transmission Date: 20120825
  Serious: Yes (Other)
  Sender: FDA-Public Use
  Company Number: BR-PFIZER INC-2012095862

PATIENT
  Age: 57 Year
  Sex: Female
  Weight: 70 kg

DRUGS (7)
  1. ATENOLOL [Concomitant]
     Indication: CARDIAC DISORDER
  2. CONDROFLEX [Concomitant]
     Indication: OSTEOARTHRITIS
  3. ATORVASTATIN CALCIUM [Concomitant]
     Indication: CARDIAC DISORDER
  4. LOSARTAN POTASSIUM [Concomitant]
     Indication: CARDIAC DISORDER
  5. LYRICA [Suspect]
     Indication: FIBROMYALGIA
     Dosage: 75 MG, 2X/DAY
     Route: 048
     Dates: start: 20120201
  6. WARFARIN SODIUM [Concomitant]
     Indication: CARDIAC DISORDER
     Dosage: UNK
     Dates: start: 20050101
  7. FLUOXETINE [Concomitant]
     Indication: FIBROMYALGIA
     Dosage: UNK

REACTIONS (3)
  - BLOOD PRESSURE INCREASED [None]
  - HEART RATE INCREASED [None]
  - DRUG INEFFECTIVE [None]
